FAERS Safety Report 9166458 (Version 1)
Quarter: 2013Q1

REPORT INFORMATION
  Report Type: Spontaneous
  Country: US (occurrence: US)
  Receive Date: 20130315
  Receipt Date: 20130315
  Transmission Date: 20140127
  Serious: Yes (Hospitalization)
  Sender: FDA-Public Use
  Company Number: US-PFIZER INC-2013053622

PATIENT
  Age: 54 Year
  Sex: Male

DRUGS (6)
  1. FLUOROURACIL [Suspect]
     Dosage: UNK
  2. IRINOTECAN HCL [Suspect]
     Dosage: UNK
  3. FOLINIC ACID [Suspect]
     Dosage: UNK
  4. ZALTRAP [Suspect]
     Indication: COLORECTAL CANCER METASTATIC
     Dosage: 440 MG, CYCLIC
     Route: 042
     Dates: start: 20120924, end: 20120924
  5. ZALTRAP [Suspect]
     Dosage: 444 MG, CYCLIC
     Route: 042
     Dates: start: 20121008, end: 20121008
  6. ZALTRAP [Suspect]
     Dosage: 489 MG, CYCLIC
     Route: 042
     Dates: start: 20121024, end: 20121024

REACTIONS (1)
  - Cerebral haemorrhage [Recovered/Resolved]
